FAERS Safety Report 14669650 (Version 3)
Quarter: 2018Q2

REPORT INFORMATION
  Report Type: Spontaneous
  Country: CA (occurrence: CA)
  Receive Date: 20180322
  Receipt Date: 20180417
  Transmission Date: 20180711
  Serious: Yes (Life-Threatening, Hospitalization, Other)
  Sender: FDA-Public Use
  Company Number: CA-SHIRE-CA201810373

PATIENT

DRUGS (1)
  1. REVESTIVE [Suspect]
     Active Substance: TEDUGLUTIDE
     Indication: SHORT-BOWEL SYNDROME
     Dosage: 2.9 MG, 1X/DAY:QD
     Route: 058
     Dates: start: 20160102

REACTIONS (5)
  - Cardiomyopathy [Unknown]
  - Cardiac failure congestive [Not Recovered/Not Resolved]
  - Intracardiac thrombus [Recovering/Resolving]
  - Dyspnoea [Unknown]
  - Cardiac failure [Unknown]

NARRATIVE: CASE EVENT DATE: 20180318
